FAERS Safety Report 5153355-7 (Version None)
Quarter: 2006Q4

REPORT INFORMATION
  Report Type: 
  Country: None (occurrence: None)
  Receive Date: 20061117
  Receipt Date: 20061109
  Transmission Date: 20070319
  Serious: Yes (Death)
  Sender: FDA-Public Use
  Company Number: DE-JNJFOC-20061102005

PATIENT
  Age: 78 Year
  Sex: Male

DRUGS (3)
  1. LEVOFLOXACIN [Suspect]
     Indication: DIARRHOEA
     Route: 065
  2. IRINOTECAN HYDROCHLORIDE SOLUTION, STERILE [Suspect]
     Indication: COLON CANCER METASTATIC
     Route: 065
  3. CHOLESTYRAMINE [Suspect]
     Indication: DIARRHOEA
     Route: 065

REACTIONS (1)
  - DEATH [None]
